FAERS Safety Report 5229726-7 (Version None)
Quarter: 2007Q1

REPORT INFORMATION
  Report Type: 
  Country: None (occurrence: None)
  Receive Date: 20070206
  Receipt Date: 20070126
  Transmission Date: 20070707
  Serious: Yes (Other)
  Sender: FDA-Public Use
  Company Number: FI-PFIZER INC-2006147840

PATIENT
  Age: 26 Year
  Sex: Female
  Weight: 53 kg

DRUGS (5)
  1. LYRICA [Suspect]
     Indication: BACK PAIN
     Route: 048
     Dates: start: 20051101, end: 20060205
  2. LYRICA [Suspect]
     Indication: PAIN IN EXTREMITY
  3. LYRICA [Suspect]
     Indication: INTERVERTEBRAL DISC PROTRUSION
  4. HARMONET [Concomitant]
     Indication: CONTRACEPTION
     Route: 048
  5. ARCOXIA [Concomitant]
     Route: 048
     Dates: start: 20051101, end: 20060101

REACTIONS (7)
  - CHEST PAIN [None]
  - CHILLS [None]
  - DRUG INEFFECTIVE [None]
  - DRUG WITHDRAWAL SYNDROME [None]
  - HYPERHIDROSIS [None]
  - INTERVERTEBRAL DISC OPERATION [None]
  - SLEEP DISORDER [None]
